FAERS Safety Report 8161387-X (Version None)
Quarter: 2012Q1

REPORT INFORMATION
  Report Type: 
  Country: None (occurrence: None)
  Receive Date: 20120224
  Receipt Date: 20111215
  Transmission Date: 20120608
  Serious: No
  Sender: FDA-Public Use
  Company Number: US-ALLERGAN-1116481US

PATIENT
  Sex: Female

DRUGS (1)
  1. LASTACAFT [Suspect]
     Indication: EYELID DISORDER
     Dosage: 2 GTT, QD
     Route: 047
     Dates: start: 20111001

REACTIONS (5)
  - FOREIGN BODY SENSATION IN EYES [None]
  - EYELID DISORDER [None]
  - OCULAR HYPERAEMIA [None]
  - EYE SWELLING [None]
  - EYE PRURITUS [None]
